FAERS Safety Report 8491885-0 (Version None)
Quarter: 2012Q3

REPORT INFORMATION
  Report Type: 
  Country: None (occurrence: None)
  Receive Date: 20120706
  Receipt Date: 20111006
  Transmission Date: 20120928
  Serious: No
  Sender: FDA-Public Use
  Company Number: US-GLAXOSMITHKLINE-A0947981A

PATIENT
  Age: 34 Year
  Sex: Male

DRUGS (2)
  1. SINGULAIR [Concomitant]
  2. FLOVENT [Suspect]
     Indication: ASTHMA
     Dosage: 2PUFF PER DAY
     Route: 055
     Dates: start: 20040101, end: 20111005

REACTIONS (7)
  - FEELING COLD [None]
  - PARAESTHESIA [None]
  - PRODUCT TASTE ABNORMAL [None]
  - PRODUCT QUALITY ISSUE [None]
  - FEELING ABNORMAL [None]
  - CHILLS [None]
  - FEELING HOT [None]
